FAERS Safety Report 8819788 (Version 2)
Quarter: 2014Q3

REPORT INFORMATION
  Report Type: Report from Study
  Country: US (occurrence: US)
  Receive Date: 20121001
  Receipt Date: 20140905
  Transmission Date: 20150326
  Serious: Yes (Hospitalization, Other)
  Sender: FDA-Public Use
  Company Number: US-ROCHE-1131170

PATIENT
  Age: 56 Year
  Sex: Female

DRUGS (17)
  1. HERCEPTIN [Suspect]
     Active Substance: TRASTUZUMAB
     Indication: METASTASES TO LIVER
  2. FLUCONAZOLE. [Concomitant]
     Active Substance: FLUCONAZOLE
     Route: 048
  3. HERCEPTIN [Suspect]
     Active Substance: TRASTUZUMAB
     Indication: BREAST CANCER METASTATIC
     Route: 065
     Dates: start: 19990720
  4. METAMUCIL [Concomitant]
     Active Substance: PLANTAGO SEED
     Dosage: 3-4 TABLESPOON PER DAY
     Route: 065
  5. COLACE [Concomitant]
     Active Substance: DOCUSATE SODIUM
     Dosage: 2-3 TABLETS PER DAY
     Route: 065
  6. PEPTO-BISMOL [Concomitant]
     Active Substance: BISMUTH SUBSALICYLATE\CALCIUM CARBONATE
  7. CELEBREX [Concomitant]
     Active Substance: CELECOXIB
     Route: 048
  8. VICODIN [Concomitant]
     Active Substance: ACETAMINOPHEN\HYDROCODONE BITARTRATE
  9. TAXOL [Concomitant]
     Active Substance: PACLITAXEL
  10. DURAGESIC [Concomitant]
     Active Substance: FENTANYL
     Route: 065
  11. OXYCONTIN [Concomitant]
     Active Substance: OXYCODONE HYDROCHLORIDE
     Route: 065
  12. TAXOTERE [Concomitant]
     Active Substance: DOCETAXEL
  13. AMITRIPTYLINE [Concomitant]
     Active Substance: AMITRIPTYLINE
     Route: 065
  14. HERCEPTIN [Suspect]
     Active Substance: TRASTUZUMAB
     Indication: BREAST CANCER FEMALE
  15. NEURONTIN (UNITED STATES) [Concomitant]
     Route: 065
  16. IBUPROFEN. [Concomitant]
     Active Substance: IBUPROFEN
  17. ATIVAN [Concomitant]
     Active Substance: LORAZEPAM

REACTIONS (19)
  - Constipation [Unknown]
  - Fatigue [Unknown]
  - Oral pain [Unknown]
  - Insomnia [Unknown]
  - Dizziness [Unknown]
  - Memory impairment [Unknown]
  - Cough [Unknown]
  - Diarrhoea [Unknown]
  - Back pain [Unknown]
  - Dysuria [Unknown]
  - Asthenia [Unknown]
  - Vomiting [Unknown]
  - Disease progression [Unknown]
  - Depression [Unknown]
  - Vulvovaginal candidiasis [Unknown]
  - Nasopharyngitis [Unknown]
  - Confusional state [Unknown]
  - Neurological symptom [Unknown]
  - Nausea [Unknown]

NARRATIVE: CASE EVENT DATE: 20010313
